FAERS Safety Report 10647712 (Version 2)
Quarter: 2014Q4

REPORT INFORMATION
  Report Type: Spontaneous
  Country: VE (occurrence: VE)
  Receive Date: 20141212
  Receipt Date: 20141212
  Transmission Date: 20150529
  Serious: Yes (Other)
  Sender: FDA-Public Use
  Company Number: VE-AMGEN-VENSP2014085692

PATIENT
  Age: 36 Year
  Sex: Female

DRUGS (1)
  1. ENBREL [Suspect]
     Active Substance: ETANERCEPT
     Indication: RHEUMATOID ARTHRITIS
     Dosage: 25 MG, EVERY 3 DAYS
     Route: 058
     Dates: end: 201407

REACTIONS (3)
  - Skin ulcer [Unknown]
  - Infected skin ulcer [Unknown]
  - Purulent discharge [Unknown]

NARRATIVE: CASE EVENT DATE: 2014
